FAERS Safety Report 5930941-5 (Version None)
Quarter: 2008Q4

REPORT INFORMATION
  Report Type: 
  Country: None (occurrence: None)
  Receive Date: 20081022
  Receipt Date: 20081006
  Transmission Date: 20090506
  Serious: Yes (Other)
  Sender: FDA-Public Use
  Company Number: 20080289

PATIENT
  Age: 30 Year
  Sex: Female

DRUGS (1)
  1. VENOFER [Suspect]
     Indication: POSTPARTUM HAEMORRHAGE
     Dosage: INTRAVENOUS
     Route: 042

REACTIONS (1)
  - PHLEBITIS [None]
